FAERS Safety Report 23831997 (Version 2)
Quarter: 2024Q2

REPORT INFORMATION
  Report Type: Report from Study
  Country: CA (occurrence: CA)
  Receive Date: 20240508
  Receipt Date: 20240619
  Transmission Date: 20240715
  Serious: Yes (Hospitalization)
  Sender: FDA-Public Use
  Company Number: CA-TAIHOP-2024-002535

PATIENT
  Age: 60 Year
  Sex: Male

DRUGS (2)
  1. LONSURF [Suspect]
     Active Substance: TIPIRACIL HYDROCHLORIDE\TRIFLURIDINE
     Indication: Colorectal cancer metastatic
     Dosage: CYCLE 1
     Route: 048
     Dates: start: 20231211
  2. LONSURF [Suspect]
     Active Substance: TIPIRACIL HYDROCHLORIDE\TRIFLURIDINE
     Dosage: DOSE, FREQUENCY, FORM STRENGTH AND CURRENT CYCLE UNKNOWN
     Route: 048
     Dates: start: 20240429

REACTIONS (6)
  - Anorectal cellulitis [Unknown]
  - Anal fistula [Unknown]
  - Rectal abscess [Unknown]
  - Perineal infection [Unknown]
  - Perineal necrosis [Unknown]
  - Asthenia [Unknown]
